FAERS Safety Report 6824413-3 (Version None)
Quarter: 2010Q3

REPORT INFORMATION
  Report Type: 
  Country: None (occurrence: None)
  Receive Date: 20100708
  Receipt Date: 20061021
  Transmission Date: 20110219
  Serious: No
  Sender: FDA-Public Use
  Company Number: US-PFIZER INC-2006128754

PATIENT
  Sex: Female
  Weight: 65.32 kg

DRUGS (15)
  1. CHANTIX [Suspect]
     Indication: SMOKING CESSATION THERAPY
     Route: 048
     Dates: start: 20060914
  2. TENORMIN [Concomitant]
     Indication: HYPERTENSION
  3. KLONOPIN [Concomitant]
  4. VICODIN [Concomitant]
     Indication: DISCOMFORT
  5. VICODIN [Concomitant]
     Indication: PAIN
  6. BACLOFEN [Concomitant]
  7. BELLAMINE [Concomitant]
  8. PAXIL [Concomitant]
  9. CYMBALTA [Concomitant]
  10. RESTORIL [Concomitant]
  11. SEROQUEL [Concomitant]
  12. PREVACID [Concomitant]
  13. ZOFRAN [Concomitant]
  14. SIMETHICONE [Concomitant]
  15. COMPAZINE [Concomitant]

REACTIONS (6)
  - DRUG INEFFECTIVE [None]
  - HEADACHE [None]
  - NAUSEA [None]
  - RASH [None]
  - SOMNOLENCE [None]
  - VOMITING [None]
